FAERS Safety Report 17221868 (Version 4)
Quarter: 2022Q2

REPORT INFORMATION
  Report Type: Spontaneous
  Country: US (occurrence: None)
  Receive Date: 20200101
  Receipt Date: 20220421
  Transmission Date: 20220720
  Serious: Yes (Other)
  Sender: FDA-Public Use
  Company Number: 2019SF91675

PATIENT
  Age: 21072 Day
  Sex: Female

DRUGS (68)
  1. PRILOSEC [Suspect]
     Active Substance: OMEPRAZOLE MAGNESIUM
     Indication: Gastrooesophageal reflux disease
     Route: 048
     Dates: start: 2000, end: 2016
  2. PRILOSEC [Suspect]
     Active Substance: OMEPRAZOLE MAGNESIUM
     Indication: Gastrooesophageal reflux disease
     Dosage: GENERIC
     Route: 065
     Dates: start: 2000, end: 2016
  3. PRILOSEC [Suspect]
     Active Substance: OMEPRAZOLE MAGNESIUM
     Indication: Gastrooesophageal reflux disease
     Dosage: GENERIC
     Route: 065
  4. PRILOSEC [Suspect]
     Active Substance: OMEPRAZOLE MAGNESIUM
     Indication: Gastrooesophageal reflux disease
     Route: 048
     Dates: start: 20090804
  5. PRILOSEC [Suspect]
     Active Substance: OMEPRAZOLE MAGNESIUM
     Indication: Gastrooesophageal reflux disease
     Dosage: GENERIC
     Route: 048
     Dates: start: 20070511
  6. PRILOSEC [Suspect]
     Active Substance: OMEPRAZOLE MAGNESIUM
     Indication: Gastrooesophageal reflux disease
     Dosage: GENERIC
     Route: 065
     Dates: start: 20031215
  7. PRILOSEC [Suspect]
     Active Substance: OMEPRAZOLE MAGNESIUM
     Indication: Gastrooesophageal reflux disease
     Dosage: GENERIC20.0MG UNKNOWN
     Route: 065
     Dates: start: 2007, end: 2021
  8. PRILOSEC [Suspect]
     Active Substance: OMEPRAZOLE MAGNESIUM
     Indication: Gastrooesophageal reflux disease
     Dosage: GENERIC20.0MG UNKNOWN
     Route: 048
     Dates: start: 2003, end: 2010
  9. PRILOSEC OTC [Suspect]
     Active Substance: OMEPRAZOLE MAGNESIUM
     Indication: Gastrooesophageal reflux disease
     Route: 048
     Dates: start: 2000, end: 2016
  10. PRILOSEC OTC [Suspect]
     Active Substance: OMEPRAZOLE MAGNESIUM
     Indication: Gastrooesophageal reflux disease
     Route: 048
     Dates: start: 2008, end: 2010
  11. PRILOSEC OTC [Suspect]
     Active Substance: OMEPRAZOLE MAGNESIUM
     Indication: Gastrooesophageal reflux disease
     Route: 048
     Dates: start: 20080505
  12. PRILOSEC OTC [Suspect]
     Active Substance: OMEPRAZOLE MAGNESIUM
     Indication: Gastrooesophageal reflux disease
     Route: 048
     Dates: start: 20031120
  13. PRILOSEC OTC [Suspect]
     Active Substance: OMEPRAZOLE MAGNESIUM
     Indication: Gastrooesophageal reflux disease
     Dosage: 20.0MG UNKNOWN
     Route: 048
     Dates: start: 2003, end: 2010
  14. PREVACID [Suspect]
     Active Substance: LANSOPRAZOLE
     Indication: Gastrooesophageal reflux disease
     Dosage: 20.0MG UNKNOWN
     Route: 065
     Dates: start: 2004, end: 2005
  15. PANTOPRAZOLE [Suspect]
     Active Substance: PANTOPRAZOLE
     Indication: Gastrooesophageal reflux disease
     Dosage: 20.0MG UNKNOWN
     Route: 065
     Dates: start: 2020, end: 2021
  16. OMEPRAZOLE\SODIUM BICARBONATE [Suspect]
     Active Substance: OMEPRAZOLE\SODIUM BICARBONATE
     Indication: Gastrooesophageal reflux disease
     Dosage: 40.0MG UNKNOWN
     Route: 065
     Dates: start: 2015, end: 2016
  17. CRESTOR [Concomitant]
     Active Substance: ROSUVASTATIN CALCIUM
     Dates: start: 2007, end: 2010
  18. TRAMADOL [Concomitant]
     Active Substance: TRAMADOL
     Dates: start: 2007, end: 2010
  19. LISINOPRIL [Concomitant]
     Active Substance: LISINOPRIL
     Dates: start: 2009
  20. AMOXICILLIN [Concomitant]
     Active Substance: AMOXICILLIN
  21. BYETTA [Concomitant]
     Active Substance: EXENATIDE
  22. ATROVENT [Concomitant]
     Active Substance: IPRATROPIUM BROMIDE
  23. RANITIDINE [Concomitant]
     Active Substance: RANITIDINE
  24. METOPROLOL [Concomitant]
     Active Substance: METOPROLOL
  25. SINGULAIR [Concomitant]
     Active Substance: MONTELUKAST SODIUM
  26. METFORMIN [Concomitant]
     Active Substance: METFORMIN HYDROCHLORIDE
  27. LEVOTHYROXINE [Concomitant]
     Active Substance: LEVOTHYROXINE
     Indication: Thyroid disorder
     Dates: start: 1998
  28. ASPIRIN [Concomitant]
     Active Substance: ASPIRIN
  29. PHENAZOPYRIDINE [Concomitant]
     Active Substance: PHENAZOPYRIDINE
  30. DICYCLOMINE [Concomitant]
     Active Substance: DICYCLOMINE HYDROCHLORIDE
  31. ACTOS [Concomitant]
     Active Substance: PIOGLITAZONE HYDROCHLORIDE
  32. FLUCONAZOLE [Concomitant]
     Active Substance: FLUCONAZOLE
  33. DIAZEPAM [Concomitant]
     Active Substance: DIAZEPAM
  34. CYMBALTA [Concomitant]
     Active Substance: DULOXETINE HYDROCHLORIDE
  35. LIDODERM [Concomitant]
     Active Substance: LIDOCAINE
  36. LEVAQUIN [Concomitant]
     Active Substance: LEVOFLOXACIN
  37. METRONIDAZOLE [Concomitant]
     Active Substance: METRONIDAZOLE
  38. SKELAXIN [Concomitant]
     Active Substance: METAXALONE
  39. AZITHROMYCIN [Concomitant]
     Active Substance: AZITHROMYCIN
  40. KETOCONAZOLE [Concomitant]
     Active Substance: KETOCONAZOLE
  41. ENDOCET [Concomitant]
     Active Substance: ACETAMINOPHEN\OXYCODONE HYDROCHLORIDE
  42. ENOXAPARIN [Concomitant]
     Active Substance: ENOXAPARIN
  43. TAMIFLU [Concomitant]
     Active Substance: OSELTAMIVIR PHOSPHATE
  44. NYSTATIN [Concomitant]
     Active Substance: NYSTATIN
  45. CYCLOBENZAPRINE [Concomitant]
     Active Substance: CYCLOBENZAPRINE
  46. ZOLOFT [Concomitant]
     Active Substance: SERTRALINE HYDROCHLORIDE
     Dates: start: 2015
  47. PROVENTIL [Concomitant]
     Active Substance: ALBUTEROL
  48. LYRICA [Concomitant]
     Active Substance: PREGABALIN
  49. HYOSCYAMINE [Concomitant]
     Active Substance: HYOSCYAMINE
  50. PREMARIN [Concomitant]
     Active Substance: ESTROGENS, CONJUGATED
  51. DETROL [Concomitant]
     Active Substance: TOLTERODINE TARTRATE
  52. ZOLPIDEM [Concomitant]
     Active Substance: ZOLPIDEM TARTRATE
  53. CYANOCOBALA [Concomitant]
  54. GUAIFENESIN [Concomitant]
     Active Substance: GUAIFENESIN
  55. TRAZODONE HYDROCHLORIDE [Concomitant]
     Active Substance: TRAZODONE HYDROCHLORIDE
     Dates: start: 20030321
  56. LORCET [Concomitant]
     Active Substance: ACETAMINOPHEN\HYDROCODONE BITARTRATE
  57. HYDROCODONE [Concomitant]
     Active Substance: HYDROCODONE
  58. IPRATROPIUM [Concomitant]
     Active Substance: IPRATROPIUM
  59. ADVAIR HFA [Concomitant]
     Active Substance: FLUTICASONE PROPIONATE\SALMETEROL XINAFOATE
     Dates: start: 2009
  60. PROAIR HFA [Concomitant]
     Active Substance: ALBUTEROL SULFATE
     Dates: start: 2009
  61. KRO NICOTINE [Concomitant]
     Dates: start: 2009
  62. CEFDINIR [Concomitant]
     Active Substance: CEFDINIR
     Dates: start: 2009
  63. LINZESS [Concomitant]
     Active Substance: LINACLOTIDE
     Dates: start: 2019
  64. LANTUS [Concomitant]
     Active Substance: INSULIN GLARGINE
     Dates: start: 2018
  65. MEVACOR [Concomitant]
     Active Substance: LOVASTATIN
     Dates: start: 2019
  66. AMITRIPTYLINE [Concomitant]
     Active Substance: AMITRIPTYLINE
     Dates: start: 2016
  67. FLEXERIL [Concomitant]
     Active Substance: CYCLOBENZAPRINE HYDROCHLORIDE
     Dates: start: 2015
  68. BREZTRI [Concomitant]
     Active Substance: BUDESONIDE\FORMOTEROL\GLYCOPYRROLATE
     Dates: start: 2015

REACTIONS (1)
  - Chronic kidney disease [Not Recovered/Not Resolved]

NARRATIVE: CASE EVENT DATE: 20160518
